FAERS Safety Report 5156660-3 (Version None)
Quarter: 2006Q4

REPORT INFORMATION
  Report Type: 
  Country: None (occurrence: None)
  Receive Date: 20061115
  Receipt Date: 20061103
  Transmission Date: 20070319
  Serious: Yes (Death, Other)
  Sender: FDA-Public Use
  Company Number: 2006101691

PATIENT
  Age: 58 Year
  Sex: Female
  Weight: 131 kg

DRUGS (9)
  1. CORVERT [Suspect]
     Indication: ATRIAL FIBRILLATION
     Dosage: 2 MG (1 MG), INTRAVENOUS
     Route: 042
     Dates: start: 20060818
  2. NOREPINEPHRINE BITARTRATE [Concomitant]
  3. FENTANYL [Concomitant]
  4. INSULIN (INSULIN) [Concomitant]
  5. DILTIAZEM [Concomitant]
  6. HEPEARIN (HEPARIN) [Concomitant]
  7. PROTONIX [Concomitant]
  8. LACRI-LUBE (LANOLIN, MINERAL OIL LIGHT, PETROLATUM) [Concomitant]
  9. CISATRACURIUM (CISATRACURIUM) [Concomitant]

REACTIONS (1)
  - THERAPY NON-RESPONDER [None]
